FAERS Safety Report 20309515 (Version 1)
Quarter: 2022Q1

REPORT INFORMATION
  Report Type: Spontaneous
  Country: US (occurrence: None)
  Receive Date: 20220107
  Receipt Date: 20220107
  Transmission Date: 20220423
  Serious: Yes (Other)
  Sender: FDA-Public Use
  Company Number: US-Fresenius Kabi-FK202200147

PATIENT
  Age: 93 Year
  Sex: Male

DRUGS (11)
  1. VANCOMYCIN [Suspect]
     Active Substance: VANCOMYCIN
     Indication: Enterococcal infection
     Dosage: ROUTE OF ADMINISTRATION REPORTED AS INTRAVITREAL INJECTION
     Route: 031
  2. VANCOMYCIN [Suspect]
     Active Substance: VANCOMYCIN
     Indication: Endophthalmitis
     Dosage: ROUTE OF ADMINISTRATION REPORTED AS INTRAVITREAL INJECTION; ?0.4MG IN 0.1ML AT POST VITRECTOMY WEEK
     Route: 031
  3. VANCOMYCIN [Suspect]
     Active Substance: VANCOMYCIN
     Dosage: RECEIVED A THIRD INJECTION OF VANCOMYCIN; ?ROUTE OF ADMINISTRATION REPORTED AS INTRAVITREAL INJECTIO
     Route: 031
  4. VANCOMYCIN [Suspect]
     Active Substance: VANCOMYCIN
     Dosage: ROUTE OF ADMINISTRATION REPORTED AS INTRAVITREAL INJECTION
     Route: 031
  5. VANCOMYCIN [Suspect]
     Active Substance: VANCOMYCIN
     Dosage: ROUTE OF ADMINISTRATION REPORTED AS INTRAVITREAL INJECTION
     Route: 031
  6. AMIKACIN [Suspect]
     Active Substance: AMIKACIN
     Indication: Enterococcal infection
     Dosage: ROUTE OF ADMINISTRATION REPORTED AS INTRAVITREAL INJECTION
     Route: 031
  7. AMIKACIN [Suspect]
     Active Substance: AMIKACIN
     Indication: Endophthalmitis
     Dosage: ROUTE OF ADMINISTRATION REPORTED AS INTRAVITREAL.?0.4MG IN 0.1ML AT POST VITRECTOMY WEEK 12
     Route: 031
  8. AMIKACIN [Suspect]
     Active Substance: AMIKACIN
     Dosage: ROUTE OF ADMINISTRATION REPORTED AS INTRAVITREAL INJECTION
     Route: 031
  9. AMIKACIN [Suspect]
     Active Substance: AMIKACIN
     Dosage: ROUTE OF ADMINISTRATION REPORTED AS INTRAVITREAL INJECTION
     Route: 031
  10. TRIAMCINOLONE [Concomitant]
     Active Substance: TRIAMCINOLONE
     Indication: Product used for unknown indication
     Dosage: UNK
     Route: 065
  11. DEXAMETHASONE [Concomitant]
     Active Substance: DEXAMETHASONE
     Indication: Product used for unknown indication
     Dosage: UNK
     Route: 065

REACTIONS (2)
  - Intentional product use issue [Unknown]
  - Choroidal detachment [Unknown]
